FAERS Safety Report 9323890 (Version 1)
Quarter: 2013Q2

REPORT INFORMATION
  Report Type: Report from Study
  Country: US (occurrence: US)
  Receive Date: 20130603
  Receipt Date: 20130603
  Transmission Date: 20140414
  Serious: Yes (Other)
  Sender: FDA-Public Use
  Company Number: US-PFIZER INC-2013163141

PATIENT
  Age: 54 Year
  Sex: Female

DRUGS (4)
  1. DOXORUBICIN HCL [Suspect]
     Indication: BREAST CANCER
     Dosage: 60 MG/M2, EVERY 2-WEEK SAME DOSES AS EVERY 3 WEEKLY SCHEDULE (4 CYCLES)
  2. CYCLOPHOSPHAMIDE [Suspect]
     Indication: BREAST CANCER
     Dosage: 600 MG/M2, EVERY 2-WEEK SAME DOSES AS EVERY 3 WEEKLY SCHEDULE (4 CYCLES)
  3. DOCETAXEL [Suspect]
     Indication: BREAST CANCER
     Dosage: 100 MG/M2 (BSA=1.9 M2) (EVERY 3 WEEKS)
  4. PEGFILGRASTIM [Concomitant]
     Indication: BREAST CANCER
     Dosage: ON DAY 2

REACTIONS (12)
  - Skin toxicity [Not Recovered/Not Resolved]
  - Palmar-plantar erythrodysaesthesia syndrome [Not Recovered/Not Resolved]
  - Asthenia [Unknown]
  - Dizziness [Unknown]
  - Fatigue [Unknown]
  - Nail bed tenderness [Unknown]
  - Pain in jaw [Unknown]
  - Back pain [Unknown]
  - Vision blurred [Unknown]
  - Lacrimation increased [Unknown]
  - Eye irritation [Unknown]
  - Rhinorrhoea [Unknown]
